FAERS Safety Report 4424525-8 (Version None)
Quarter: 2004Q3

REPORT INFORMATION
  Report Type: 
  Country: None (occurrence: None)
  Receive Date: 20040812
  Receipt Date: 20040806
  Transmission Date: 20050211
  Serious: Yes (Life-Threatening)
  Sender: FDA-Public Use
  Company Number: JP-ROCHE-376881

PATIENT
  Age: 67 Year
  Sex: Male

DRUGS (4)
  1. ROCEPHIN [Suspect]
     Indication: PNEUMONIA
     Route: 042
     Dates: start: 20040711, end: 20040730
  2. MINOMYCIN [Concomitant]
  3. MS CONTIN [Concomitant]
     Route: 048
  4. DUROTEP [Concomitant]
     Route: 061

REACTIONS (1)
  - INTERSTITIAL LUNG DISEASE [None]
